FAERS Safety Report 9445509 (Version 1)
Quarter: 2013Q3

REPORT INFORMATION
  Report Type: Spontaneous
  Country: TR (occurrence: None)
  Receive Date: 20130805
  Receipt Date: 20130805
  Transmission Date: 20140515
  Serious: Yes (Death, Hospitalization)
  Sender: FDA-Public Use
  Company Number: IPC201307-000295

PATIENT
  Age: 17 Year
  Sex: Female

DRUGS (3)
  1. METFORMIN HYDROCHLORIDE [Suspect]
  2. RUPATADINE [Suspect]
  3. AMITRIPTYLINE [Suspect]
     Indication: MAJOR DEPRESSION

REACTIONS (10)
  - Overdose [None]
  - Metabolic acidosis [None]
  - Ventricular tachycardia [None]
  - Drug interaction [None]
  - Completed suicide [None]
  - Blood pressure decreased [None]
  - Heart rate increased [None]
  - Blood glucose increased [None]
  - Base excess [None]
  - Haemodialysis [None]
